FAERS Safety Report 25279340 (Version 1)
Quarter: 2025Q2

REPORT INFORMATION
  Report Type: Spontaneous
  Country: US (occurrence: US)
  Receive Date: 20250507
  Receipt Date: 20250507
  Transmission Date: 20250717
  Serious: Yes (Other)
  Sender: ROCHE
  Company Number: US-ROCHE-10000277206

PATIENT

DRUGS (7)
  1. TNKASE [Suspect]
     Active Substance: TENECTEPLASE
     Indication: Ischaemic stroke
     Route: 065
     Dates: start: 202411
  2. TNKASE [Suspect]
     Active Substance: TENECTEPLASE
     Route: 065
     Dates: start: 202411
  3. TNKASE [Suspect]
     Active Substance: TENECTEPLASE
     Route: 065
     Dates: start: 202411
  4. TNKASE [Suspect]
     Active Substance: TENECTEPLASE
     Route: 065
     Dates: start: 202411
  5. TNKASE [Suspect]
     Active Substance: TENECTEPLASE
     Route: 065
     Dates: start: 202411
  6. TNKASE [Suspect]
     Active Substance: TENECTEPLASE
     Route: 065
     Dates: start: 202411
  7. TNKASE [Suspect]
     Active Substance: TENECTEPLASE
     Route: 065
     Dates: start: 202411

REACTIONS (1)
  - Haemorrhagic transformation stroke [Unknown]

NARRATIVE: CASE EVENT DATE: 20241101
